FAERS Safety Report 13900570 (Version 1)
Quarter: 2017Q3

REPORT INFORMATION
  Report Type: Report from Study
  Country: None (occurrence: US)
  Receive Date: 20170823
  Receipt Date: 20170823
  Transmission Date: 20171127
  Serious: Yes (Other)
  Sender: FDA-Public Use
  Company Number: US-ABBVIE-17K-163-1931330-00

PATIENT
  Age: 32 Year
  Sex: Male

DRUGS (1)
  1. HUMIRA [Suspect]
     Active Substance: ADALIMUMAB
     Indication: COLITIS ULCERATIVE
     Route: 058
     Dates: start: 2013

REACTIONS (4)
  - Inappropriate schedule of drug administration [Unknown]
  - Impaired healing [Not Recovered/Not Resolved]
  - Colitis ulcerative [Unknown]
  - Cartilage injury [Recovering/Resolving]

NARRATIVE: CASE EVENT DATE: 201701
